FAERS Safety Report 14699544 (Version 1)
Quarter: 2018Q1

REPORT INFORMATION
  Report Type: Spontaneous
  Country: US (occurrence: US)
  Receive Date: 20180329
  Receipt Date: 20180329
  Transmission Date: 20180509
  Serious: No
  Sender: FDA-Public Use
  Company Number: None

PATIENT
  Age: 71 Year
  Sex: Female
  Weight: 67.5 kg

DRUGS (1)
  1. TELMISARTAN- HCTZ [Suspect]
     Active Substance: HYDROCHLOROTHIAZIDE\TELMISARTAN
     Indication: HYPERTENSION
     Route: 048
     Dates: start: 20171201, end: 20180329

REACTIONS (3)
  - Product substitution issue [None]
  - Product blister packaging issue [None]
  - Product label issue [None]

NARRATIVE: CASE EVENT DATE: 20180329
